FAERS Safety Report 18573046 (Version 1)
Quarter: 2020Q4

REPORT INFORMATION
  Report Type: Spontaneous
  Country: US (occurrence: US)
  Receive Date: 20201203
  Receipt Date: 20201203
  Transmission Date: 20210114
  Serious: No
  Sender: FDA-Public Use
  Company Number: US-ALLERGAN-2027249US

PATIENT
  Age: 81 Year
  Sex: Female

DRUGS (11)
  1. FLUTICASONE FUROATE [Concomitant]
     Active Substance: FLUTICASONE FUROATE
  2. DALVANCE [Suspect]
     Active Substance: DALBAVANCIN
     Indication: STAPHYLOCOCCAL INFECTION
  3. VITAMIN D3 [Concomitant]
     Active Substance: CHOLECALCIFEROL
  4. DALVANCE [Suspect]
     Active Substance: DALBAVANCIN
     Indication: CULTURE POSITIVE
     Dosage: 1500 MG, SINGLE
     Dates: start: 20200708, end: 20200708
  5. ZYRTEC [Concomitant]
     Active Substance: CETIRIZINE HYDROCHLORIDE
     Indication: HYPERSENSITIVITY
     Dosage: UNK, QD
     Route: 048
  6. SIMVASTATIN. [Concomitant]
     Active Substance: SIMVASTATIN
     Dosage: UNK, QHS
     Route: 048
  7. VILANTEROL [Concomitant]
     Active Substance: VILANTEROL TRIFENATATE
     Route: 055
  8. DALVANCE [Suspect]
     Active Substance: DALBAVANCIN
     Indication: SKIN ULCER
  9. COZAAR [Concomitant]
     Active Substance: LOSARTAN POTASSIUM
     Dosage: UNK, QHS
  10. SINGULAIR [Concomitant]
     Active Substance: MONTELUKAST SODIUM
     Dosage: UNK, QD
  11. ASPIRIN. [Concomitant]
     Active Substance: ASPIRIN
     Dosage: 81 MG

REACTIONS (3)
  - Rash [Recovered/Resolved]
  - Hypersensitivity [Recovered/Resolved]
  - Pruritus [Recovered/Resolved]

NARRATIVE: CASE EVENT DATE: 20200709
